FAERS Safety Report 7578103-2 (Version None)
Quarter: 2011Q2

REPORT INFORMATION
  Report Type: 
  Country: None (occurrence: None)
  Receive Date: 20110628
  Receipt Date: 20110613
  Transmission Date: 20111010
  Serious: Yes (Other)
  Sender: FDA-Public Use
  Company Number: IN-WATSON-2011-09066

PATIENT
  Age: 37 Year
  Sex: Female

DRUGS (4)
  1. ACYCLOVIR [Suspect]
     Indication: VULVAL ULCERATION
     Dosage: UNK
  2. METRONIDAZOLE [Suspect]
     Indication: CROHN'S DISEASE
     Dosage: 400 MG, TID
  3. DOXYCYCLINE [Suspect]
     Indication: VULVAL ULCERATION
     Dosage: UNK
  4. FLUCONAZOLE [Suspect]
     Indication: VULVAL ULCERATION
     Dosage: UNK

REACTIONS (2)
  - DRUG INEFFECTIVE [None]
  - NEUROPATHY PERIPHERAL [None]
